FAERS Safety Report 9749867 (Version 2)
Quarter: 2013Q4

REPORT INFORMATION
  Report Type: Spontaneous
  Country: US (occurrence: US)
  Receive Date: 20131212
  Receipt Date: 20131230
  Transmission Date: 20140711
  Serious: Yes (Other)
  Sender: FDA-Public Use
  Company Number: US-PFIZER INC-2013354530

PATIENT
  Age: 64 Year
  Sex: Male
  Weight: 83.9 kg

DRUGS (8)
  1. CELEBREX [Suspect]
     Indication: NECK PAIN
     Dosage: 200 MG, 1X/DAY
     Route: 048
     Dates: start: 20130601, end: 201311
  2. CELEBREX [Suspect]
     Indication: BACK PAIN
  3. CELEBREX [Suspect]
     Indication: ARTHRITIS
  4. CELEBREX [Suspect]
     Indication: PROCEDURAL PAIN
  5. ATORVASTATIN [Concomitant]
     Indication: BLOOD CHOLESTEROL INCREASED
     Dosage: 40 MG, UNK
  6. OMEPRAZOLE [Concomitant]
     Indication: GASTROOESOPHAGEAL REFLUX DISEASE
     Dosage: 40 MG, UNK
  7. ESCITALOPRAM [Concomitant]
     Dosage: 10 MG, UNK
  8. ASPIRIN [Concomitant]
     Dosage: 81 MG, UNK

REACTIONS (5)
  - Haematochezia [Recovered/Resolved]
  - Haemorrhage [Unknown]
  - Anaemia [Unknown]
  - Blood iron decreased [Unknown]
  - Hypertension [Recovered/Resolved]
